FAERS Safety Report 6570605-0 (Version None)
Quarter: 2010Q1

REPORT INFORMATION
  Report Type: 
  Country: None (occurrence: None)
  Receive Date: 20100204
  Receipt Date: 20100129
  Transmission Date: 20100710
  Serious: No
  Sender: FDA-Public Use
  Company Number: US-B.I. PHARMACEUTICALS,INC./RIDGEFIELD-2010-BP-00402BP

PATIENT
  Sex: Male

DRUGS (3)
  1. FLOMAX [Suspect]
     Indication: BENIGN PROSTATIC HYPERPLASIA
     Dosage: 0.4 MG
     Dates: start: 20100108
  2. CRESTOR [Concomitant]
     Dosage: 10 MG
     Dates: start: 20041021
  3. ACIPHEX [Concomitant]
     Dosage: 20 MG
     Dates: start: 20090824

REACTIONS (2)
  - PAIN [None]
  - TESTICULAR PAIN [None]
